FAERS Safety Report 23229222 (Version 1)
Quarter: 2023Q4

REPORT INFORMATION
  Report Type: Report from Study
  Country: CN (occurrence: CN)
  Receive Date: 20231127
  Receipt Date: 20231127
  Transmission Date: 20240110
  Serious: Yes (Hospitalization, Other)
  Sender: FDA-Public Use
  Company Number: CN-NOVOPROD-1141900

PATIENT
  Age: 5 Year
  Sex: Male

DRUGS (2)
  1. NOVOEIGHT [Suspect]
     Active Substance: ANTIHEMOPHILIC FACTOR, HUMAN RECOMBINANT
     Dosage: 250 IU/PIECE, 14 PIECES
     Route: 042
     Dates: start: 202310
  2. NOVOEIGHT [Suspect]
     Active Substance: ANTIHEMOPHILIC FACTOR, HUMAN RECOMBINANT
     Indication: Factor VIII deficiency
     Dosage: UNK
     Route: 042
     Dates: start: 20231006, end: 20231008

REACTIONS (3)
  - Contusion [Recovering/Resolving]
  - Upper respiratory tract infection [Recovering/Resolving]
  - Injury [Recovered/Resolved]

NARRATIVE: CASE EVENT DATE: 20231001
